FAERS Safety Report 13734224 (Version 2)
Quarter: 2017Q3

REPORT INFORMATION
  Report Type: Report from Study
  Country: US (occurrence: US)
  Receive Date: 20170708
  Receipt Date: 20170831
  Transmission Date: 20171127
  Serious: No
  Sender: FDA-Public Use
  Company Number: US-009507513-1706USA006304

PATIENT
  Sex: Female
  Weight: 76.92 kg

DRUGS (2)
  1. IMPLANON [Suspect]
     Active Substance: ETONOGESTREL
     Dosage: 1 ROD/3 YEARS
     Route: 059
  2. IMPLANON [Suspect]
     Active Substance: ETONOGESTREL
     Dosage: 1 ROD/3 YEARS
     Route: 059

REACTIONS (3)
  - Product quality issue [Unknown]
  - No adverse event [Unknown]
  - Complication of device insertion [Recovered/Resolved]
